FAERS Safety Report 7376029-0 (Version None)
Quarter: 2011Q1

REPORT INFORMATION
  Report Type: 
  Country: None (occurrence: None)
  Receive Date: 20110317
  Receipt Date: 20110216
  Transmission Date: 20110831
  Serious: Yes (Life-Threatening)
  Sender: FDA-Public Use
  Company Number: IN-1185340

PATIENT
  Age: 24 Month
  Sex: Male
  Weight: 13 kg

DRUGS (8)
  1. TRICLOFOS [Concomitant]
  2. SEVOFLURANE [Concomitant]
  3. NITROUS OXIDE [Concomitant]
  4. PHENYLEPHRINE HCL [Suspect]
     Indication: OPHTHALMOLOGICAL EXAMINATION
     Dosage: 1 GTT X3, OPHTHALMIC
  5. FENTANYL [Concomitant]
  6. OXYGEN [Concomitant]
  7. GLYCOPYRROLATE [Concomitant]
  8. ATRACURIUM BESYLATE [Concomitant]

REACTIONS (3)
  - HEART RATE INCREASED [None]
  - BLOOD PRESSURE INCREASED [None]
  - PULMONARY OEDEMA [None]
